FAERS Safety Report 22125437 (Version 1)
Quarter: 2023Q1

REPORT INFORMATION
  Report Type: Report from Study
  Country: US (occurrence: US)
  Receive Date: 20230322
  Receipt Date: 20230322
  Transmission Date: 20230417
  Serious: Yes (Death)
  Sender: FDA-Public Use
  Company Number: US-UCBSA-2023014685

PATIENT
  Age: 93 Year
  Sex: Male

DRUGS (1)
  1. ROTIGOTINE [Suspect]
     Active Substance: ROTIGOTINE
     Indication: Parkinson^s disease
     Dosage: 6 MILLIGRAM 1 PATCH DAILY
     Dates: start: 201612, end: 20230317

REACTIONS (1)
  - Death [Fatal]

NARRATIVE: CASE EVENT DATE: 20230317
